FAERS Safety Report 15348845 (Version 1)
Quarter: 2018Q3

REPORT INFORMATION
  Report Type: Spontaneous
  Country: US (occurrence: US)
  Receive Date: 20180829
  Receipt Date: 20180829
  Transmission Date: 20181010
  Serious: Yes (Other)
  Sender: FDA-Public Use
  Company Number: None

PATIENT
  Age: 61 Year
  Sex: Female
  Weight: 108 kg

DRUGS (3)
  1. OXYCODONE/ACETAMINOPHEN 7.5/325 [Suspect]
     Active Substance: ACETAMINOPHEN\OXYCODONE HYDROCHLORIDE
     Indication: SPINAL FRACTURE
     Route: 048
     Dates: start: 20180816
  2. OXYCODONE/ACETAMINOPHEN 7.5/325 [Suspect]
     Active Substance: ACETAMINOPHEN\OXYCODONE HYDROCHLORIDE
     Indication: FRACTURED SACRUM
     Route: 048
     Dates: start: 20180816
  3. OXYCODONE/ACETAMINOPHEN 7.5/325 [Suspect]
     Active Substance: ACETAMINOPHEN\OXYCODONE HYDROCHLORIDE
     Indication: PELVIC FRACTURE
     Route: 048
     Dates: start: 20180816

REACTIONS (4)
  - Inadequate analgesia [None]
  - Product substitution issue [None]
  - Tongue discomfort [None]
  - Fall [None]

NARRATIVE: CASE EVENT DATE: 20180715
